FAERS Safety Report 4798230-2 (Version None)
Quarter: 2005Q4

REPORT INFORMATION
  Report Type: 
  Country: None (occurrence: None)
  Receive Date: 20051011
  Receipt Date: 20050928
  Transmission Date: 20060501
  Serious: Yes (Disabling, Other)
  Sender: FDA-Public Use
  Company Number: 2005135987

PATIENT
  Age: 43 Year
  Sex: Female
  Weight: 52.6173 kg

DRUGS (3)
  1. NEURONTIN [Suspect]
     Indication: MYELITIS TRANSVERSE
     Dosage: 900 MG (1 D)
  2. GABAPENTIN [Suspect]
     Indication: MYELITIS TRANSVERSE
     Dosage: 900 MG (1 D)
  3. PROZAC [Concomitant]

REACTIONS (4)
  - CONDITION AGGRAVATED [None]
  - DRUG EFFECT DECREASED [None]
  - NEURALGIA [None]
  - SOMNOLENCE [None]
